FAERS Safety Report 7107337-6 (Version None)
Quarter: 2010Q4

REPORT INFORMATION
  Report Type: 
  Country: None (occurrence: None)
  Receive Date: 20101117
  Receipt Date: 20100708
  Transmission Date: 20110411
  Serious: No
  Sender: FDA-Public Use
  Company Number: US-MYLANLABS-2010S1012233

PATIENT
  Sex: Male

DRUGS (4)
  1. ATENOLOL AND CHLORTHALIDONE [Suspect]
     Indication: BLOOD PRESSURE INADEQUATELY CONTROLLED
     Route: 048
     Dates: start: 20100706, end: 20100708
  2. ATENOLOL AND CHLORTHALIDONE [Suspect]
     Route: 048
     Dates: start: 20100706, end: 20100708
  3. NUCYNTA [Concomitant]
     Indication: BACK PAIN
  4. SINGULAIR [Concomitant]
     Indication: ASTHMA

REACTIONS (3)
  - ABDOMINAL PAIN [None]
  - NAUSEA [None]
  - REACTION TO DRUG EXCIPIENTS [None]
